FAERS Safety Report 18330309 (Version 5)
Quarter: 2020Q4

REPORT INFORMATION
  Report Type: Report from Study
  Country: US (occurrence: US)
  Receive Date: 20200930
  Receipt Date: 20201211
  Transmission Date: 20210113
  Serious: Yes (Hospitalization, Other)
  Sender: FDA-Public Use
  Company Number: US-GLAXOSMITHKLINE-US2020AMR167392

PATIENT
  Sex: Female

DRUGS (8)
  1. NIRAPARIB [Suspect]
     Active Substance: NIRAPARIB
     Dosage: 100 MG, QD
     Dates: start: 2020
  2. NIRAPARIB [Suspect]
     Active Substance: NIRAPARIB
     Indication: MALIGNANT PERITONEAL NEOPLASM
     Dosage: 100 MG, QD
     Dates: start: 202008
  3. NIRAPARIB [Suspect]
     Active Substance: NIRAPARIB
     Dosage: 100 MG, QD
     Dates: start: 20201011
  4. NIRAPARIB [Suspect]
     Active Substance: NIRAPARIB
     Dosage: 100 MG, QD
     Dates: start: 202009
  5. NIRAPARIB [Suspect]
     Active Substance: NIRAPARIB
     Dosage: 100 MG, QD
     Dates: start: 202009, end: 202009
  6. NIRAPARIB [Suspect]
     Active Substance: NIRAPARIB
     Dosage: 100 MG, QD
  7. MAG OX [Suspect]
     Active Substance: MAGNESIUM OXIDE
     Indication: BLOOD MAGNESIUM DECREASED
     Dosage: 400 MG, BID
     Route: 048
  8. MAGNESIUM INFUSION [Concomitant]
     Indication: BLOOD MAGNESIUM DECREASED
     Dosage: UNK

REACTIONS (11)
  - Diarrhoea [Not Recovered/Not Resolved]
  - Gastrointestinal disorder [Unknown]
  - Nausea [Recovered/Resolved]
  - Myalgia [Not Recovered/Not Resolved]
  - Off label use [Unknown]
  - Dry mouth [Unknown]
  - Intestinal obstruction [Recovered/Resolved]
  - Asthenia [Recovering/Resolving]
  - Vomiting [Unknown]
  - Arthralgia [Not Recovered/Not Resolved]
  - Bone pain [Not Recovered/Not Resolved]
